FAERS Safety Report 7789842-2 (Version None)
Quarter: 2011Q3

REPORT INFORMATION
  Report Type: 
  Country: None (occurrence: None)
  Receive Date: 20110930
  Receipt Date: 20101209
  Transmission Date: 20111222
  Serious: No
  Sender: FDA-Public Use
  Company Number: US-ASTRAZENECA-2006UW28057

PATIENT
  Age: 943 Month
  Sex: Female
  Weight: 68 kg

DRUGS (2)
  1. ARIMIDEX [Suspect]
     Indication: BREAST CANCER
     Route: 048
     Dates: start: 20050201, end: 20050801
  2. FEMARA [Suspect]
     Route: 065

REACTIONS (2)
  - ABDOMINAL DISCOMFORT [None]
  - FAECAL INCONTINENCE [None]
